FAERS Safety Report 7498291-6 (Version None)
Quarter: 2011Q2

REPORT INFORMATION
  Report Type: 
  Country: None (occurrence: None)
  Receive Date: 20110524
  Receipt Date: 20110509
  Transmission Date: 20111010
  Serious: Yes (Other)
  Sender: FDA-Public Use
  Company Number: JP-BAYER-2011-042696

PATIENT
  Age: 7 Year
  Sex: Male

DRUGS (8)
  1. TOCILIZUMAB [Suspect]
     Indication: JUVENILE ARTHRITIS
     Dosage: 270 MG ONE PER TWO WEEKS
     Route: 042
     Dates: start: 20101116, end: 20110111
  2. RHEUMATREX [Suspect]
     Indication: JUVENILE ARTHRITIS
     Dosage: 10 MG 1 PER 1 WEEK
     Route: 048
     Dates: start: 20100905, end: 20110130
  3. PREDNISOLONE [Concomitant]
  4. NAPROXEN SODIUM [Suspect]
     Indication: JUVENILE ARTHRITIS
     Dosage: 400 MG, QD
     Route: 048
     Dates: start: 20100909
  5. LANSOPRAZOLE [Concomitant]
  6. TOCILIZUMAB [Suspect]
     Dosage: DAILY DOSE 300 MG
     Route: 042
     Dates: start: 20110207, end: 20110418
  7. AMOXICILLIN [Concomitant]
  8. ALFACALCIDOL [Concomitant]

REACTIONS (1)
  - LIVER DISORDER [None]
